FAERS Safety Report 17117061 (Version 1)
Quarter: 2019Q4

REPORT INFORMATION
  Report Type: Spontaneous
  Country: CN (occurrence: CN)
  Receive Date: 20191205
  Receipt Date: 20191205
  Transmission Date: 20200122
  Serious: Yes (Other)
  Sender: FDA-Public Use
  Company Number: CN-009507513-1912CHN001358

PATIENT
  Sex: Male
  Weight: 60 kg

DRUGS (1)
  1. TIENAM  (BULK) [Suspect]
     Active Substance: CILASTATIN SODIUM\IMIPENEM
     Indication: PNEUMONIA
     Dosage: 500 MILLIGRAM EVERY 6 HOURS
     Route: 041
     Dates: start: 20190920, end: 20191122

REACTIONS (1)
  - Muscle twitching [Recovering/Resolving]

NARRATIVE: CASE EVENT DATE: 20190922
